FAERS Safety Report 9452981 (Version 1)
Quarter: 2013Q3

REPORT INFORMATION
  Report Type: Report from Study
  Country: US (occurrence: US)
  Receive Date: 20130812
  Receipt Date: 20130812
  Transmission Date: 20140515
  Serious: Yes (Hospitalization)
  Sender: FDA-Public Use
  Company Number: US-UCBSA-095146

PATIENT
  Age: 67 Year
  Sex: Female
  Weight: 101.4 kg

DRUGS (17)
  1. CERTOLIZUMAB PEGOL [Suspect]
     Indication: RHEUMATOID ARTHRITIS
     Route: 058
     Dates: end: 20130807
  2. CALCITRIOL [Concomitant]
     Indication: VITAMIN D DEFICIENCY
     Route: 048
     Dates: start: 20130327
  3. FOLIC ACID [Concomitant]
     Indication: PROPHYLAXIS
     Route: 048
     Dates: start: 20130425
  4. FOLIC ACID [Concomitant]
     Indication: PROPHYLAXIS
     Route: 048
     Dates: start: 20130321, end: 20130424
  5. PRAVASTATIN [Concomitant]
     Indication: HYPERLIPIDAEMIA
     Route: 048
     Dates: start: 2006
  6. TRAMADOL [Concomitant]
     Indication: RHEUMATOID ARTHRITIS
     Route: 048
     Dates: start: 2012
  7. TYLENOL 3 [Concomitant]
     Indication: RHEUMATOID ARTHRITIS
     Dosage: 300/30 MG
     Route: 048
     Dates: start: 20130316
  8. LOSARTAN [Concomitant]
     Indication: HYPERTENSION
     Route: 048
     Dates: start: 2006
  9. LOTREL [Concomitant]
     Indication: HYPERTENSION
     Dosage: 5/10 MG
     Route: 048
     Dates: start: 201210
  10. MEDROL [Concomitant]
     Indication: RHEUMATOID ARTHRITIS
     Route: 048
     Dates: start: 201207
  11. NAPROXEN [Concomitant]
     Indication: RHEUMATOID ARTHRITIS
     Route: 048
     Dates: start: 201204
  12. NASONEX [Concomitant]
     Indication: SEASONAL ALLERGY
     Route: 045
     Dates: start: 2011
  13. COLACE SODIUM [Concomitant]
     Indication: CONSTIPATION
     Dates: start: 2011
  14. HYDRALAZINE [Concomitant]
     Indication: HYPERTENSION
     Route: 048
     Dates: start: 2011
  15. ISOSORBIDE DINITRATE [Concomitant]
     Indication: HYPERTENSION
     Route: 048
     Dates: start: 1993
  16. LANTUS [Concomitant]
     Indication: DIABETES MELLITUS
     Dosage: 100/ 11ML
     Dates: start: 201301
  17. LASIX [Concomitant]
     Indication: OEDEMA
     Dates: start: 2011

REACTIONS (1)
  - Pneumonia [Not Recovered/Not Resolved]
